FAERS Safety Report 4443286-X (Version None)
Quarter: 2004Q3

REPORT INFORMATION
  Report Type: 
  Country: None (occurrence: None)
  Receive Date: 20040728
  Receipt Date: 20040520
  Transmission Date: 20050211
  Serious: No
  Sender: FDA-Public Use
  Company Number: USA040568165

PATIENT
  Age: 55 Year
  Sex: Male

DRUGS (1)
  1. STRATTERA [Suspect]
     Indication: ATTENTION DEFICIT/HYPERACTIVITY DISORDER
     Dosage: 25 MG DAY
     Dates: start: 20040504

REACTIONS (5)
  - CONSTIPATION [None]
  - HEADACHE [None]
  - POLLAKIURIA [None]
  - SLEEP DISORDER [None]
  - VISION BLURRED [None]
